FAERS Safety Report 20860342 (Version 1)
Quarter: 2022Q2

REPORT INFORMATION
  Report Type: Report from Study
  Country: US (occurrence: US)
  Receive Date: 20220523
  Receipt Date: 20220523
  Transmission Date: 20220721
  Serious: Yes (Hospitalization, Other)
  Sender: FDA-Public Use
  Company Number: US-TAKEDA-2022TUS033022

PATIENT
  Sex: Female

DRUGS (4)
  1. TEDUGLUTIDE [Suspect]
     Active Substance: TEDUGLUTIDE
     Indication: Product used for unknown indication
     Dosage: 0.265 MILLIGRAM, QD
     Route: 058
     Dates: start: 20220305
  2. TEDUGLUTIDE [Suspect]
     Active Substance: TEDUGLUTIDE
     Indication: Product used for unknown indication
     Dosage: 0.265 MILLIGRAM, QD
     Route: 058
     Dates: start: 20220305
  3. TEDUGLUTIDE [Suspect]
     Active Substance: TEDUGLUTIDE
     Indication: Product used for unknown indication
     Dosage: 0.265 MILLIGRAM, QD
     Route: 058
     Dates: start: 20220305
  4. TEDUGLUTIDE [Suspect]
     Active Substance: TEDUGLUTIDE
     Indication: Product used for unknown indication
     Dosage: 0.265 MILLIGRAM, QD
     Route: 058
     Dates: start: 20220305

REACTIONS (2)
  - Vascular device infection [Not Recovered/Not Resolved]
  - Product dose omission issue [Unknown]
